FAERS Safety Report 19256833 (Version 1)
Quarter: 2021Q2

REPORT INFORMATION
  Report Type: Spontaneous
  Country: CA (occurrence: CA)
  Receive Date: 20210514
  Receipt Date: 20210514
  Transmission Date: 20210717
  Serious: Yes (Other)
  Sender: FDA-Public Use
  Company Number: CA-ORION CORPORATION ORION PHARMA-21_00014069

PATIENT
  Age: 79 Year
  Sex: Female

DRUGS (2)
  1. SHINGRIX [Concomitant]
     Active Substance: RECOMBINANT VARICELLA ZOSTER VIRUS (VZV) GLYCOPROTEIN E
     Route: 065
  2. METHOTREXATE (TRADE NAME UNKNOWN) [Suspect]
     Active Substance: METHOTREXATE
     Indication: PRODUCT USED FOR UNKNOWN INDICATION
     Route: 065
     Dates: start: 2015, end: 2017

REACTIONS (7)
  - Alopecia [Not Recovered/Not Resolved]
  - Scar [Unknown]
  - Parosmia [Unknown]
  - Illness [Unknown]
  - Perfume sensitivity [Unknown]
  - Drug-induced liver injury [Unknown]
  - Urinary tract infection [Not Recovered/Not Resolved]
